FAERS Safety Report 4428833-6 (Version None)
Quarter: 2004Q3

REPORT INFORMATION
  Report Type: 
  Country: None (occurrence: None)
  Receive Date: 20040818
  Receipt Date: 20040810
  Transmission Date: 20050211
  Serious: Yes (Hospitalization)
  Sender: FDA-Public Use
  Company Number: FR-GLAXOSMITHKLINE-B0342085A

PATIENT
  Age: 2 Day
  Sex: Male
  Weight: 3 kg

DRUGS (2)
  1. DEROXAT [Suspect]
     Indication: DEPRESSION
     Dosage: 20MG PER DAY
     Dates: start: 20031213, end: 20040505
  2. TERCIAN [Suspect]
     Indication: DEPRESSION
     Dosage: 40MG PER DAY
     Dates: start: 20031213, end: 20040505

REACTIONS (7)
  - DRUG EXPOSURE DURING PREGNANCY [None]
  - DRUG WITHDRAWAL SYNDROME NEONATAL [None]
  - HYPERTONIA NEONATAL [None]
  - NEONATAL APNOEIC ATTACK [None]
  - NEONATAL TACHYCARDIA [None]
  - RESPIRATORY DISORDER NEONATAL [None]
  - TREMOR NEONATAL [None]
